FAERS Safety Report 17268313 (Version 3)
Quarter: 2020Q1

REPORT INFORMATION
  Report Type: Report from Study
  Country: None (occurrence: RO)
  Receive Date: 20200114
  Receipt Date: 20200315
  Transmission Date: 20200409
  Serious: Yes (Other)
  Sender: FDA-Public Use
  Company Number: RO-ABBVIE-20K-135-3230347-00

PATIENT
  Age: 65 Year
  Sex: Female

DRUGS (1)
  1. HUMIRA [Suspect]
     Active Substance: ADALIMUMAB
     Indication: PSORIASIS
     Route: 058
     Dates: start: 20140515

REACTIONS (7)
  - Tympanic membrane perforation [Recovered/Resolved]
  - Diarrhoea [Recovered/Resolved]
  - Breast cyst [Not Recovered/Not Resolved]
  - Ear infection [Recovered/Resolved]
  - Unevaluable event [Not Recovered/Not Resolved]
  - Eye infection [Recovering/Resolving]
  - Ear infection [Recovered/Resolved]

NARRATIVE: CASE EVENT DATE: 2018
